FAERS Safety Report 7625748-7 (Version None)
Quarter: 2011Q3

REPORT INFORMATION
  Report Type: 
  Country: None (occurrence: None)
  Receive Date: 20110721
  Receipt Date: 20110718
  Transmission Date: 20111222
  Serious: No
  Sender: FDA-Public Use
  Company Number: US-B.I. PHARMACEUTICALS,INC./RIDGEFIELD-2011-BP-17972BP

PATIENT
  Age: 51 Year
  Sex: Female

DRUGS (3)
  1. ATENOLOL [Concomitant]
     Indication: ATRIAL FIBRILLATION
     Dates: start: 20100801
  2. FLECAINIDE ACETATE [Concomitant]
     Indication: ATRIAL FIBRILLATION
     Dates: start: 20100801
  3. PRADAXA [Suspect]
     Indication: ATRIAL FIBRILLATION
     Dosage: 300 MG
     Route: 048
     Dates: start: 20110101

REACTIONS (2)
  - MENORRHAGIA [None]
  - ANORECTAL DISCOMFORT [None]
